FAERS Safety Report 6143377-1 (Version None)
Quarter: 2009Q2

REPORT INFORMATION
  Report Type: 
  Country: None (occurrence: None)
  Receive Date: 20090403
  Receipt Date: 20090330
  Transmission Date: 20091009
  Serious: Yes (Other)
  Sender: FDA-Public Use
  Company Number: US-WYE-H08750109

PATIENT
  Age: 62 Year
  Sex: Female

DRUGS (2)
  1. TIGECYCLINE [Suspect]
     Indication: INFECTED SKIN ULCER
     Dosage: UNKNOWN
  2. IMIPENEM [Suspect]
     Indication: INFECTED SKIN ULCER
     Dosage: UNKNOWN

REACTIONS (2)
  - HYPERAMMONAEMIA [None]
  - RENAL FAILURE [None]
